FAERS Safety Report 5551206-X (Version None)
Quarter: 2007Q4

REPORT INFORMATION
  Report Type: 
  Country: None (occurrence: None)
  Receive Date: 20071127
  Receipt Date: 20070726
  Transmission Date: 20080405
  Serious: Yes (Other)
  Sender: FDA-Public Use
  Company Number: CHPA2007US08180

PATIENT
  Age: 36 Year
  Sex: Male

DRUGS (1)
  1. NICOTINE [Suspect]
     Indication: SMOKING CESSATION THERAPY
     Dosage: 21 MG, QD, TRANSDERMAL
     Route: 062
     Dates: end: 20070725

REACTIONS (3)
  - CHEST DISCOMFORT [None]
  - OVERDOSE [None]
  - TREATMENT NONCOMPLIANCE [None]
